FAERS Safety Report 8447473-5 (Version None)
Quarter: 2012Q2

REPORT INFORMATION
  Report Type: 
  Country: None (occurrence: None)
  Receive Date: 20120613
  Receipt Date: 20120613
  Transmission Date: 20120825
  Serious: Yes (Hospitalization)
  Sender: FDA-Public Use
  Company Number: None

PATIENT
  Sex: Male
  Weight: 101 kg

DRUGS (1)
  1. INTRON A [Suspect]
     Dosage: 950 MILLION IU

REACTIONS (2)
  - CONDITION AGGRAVATED [None]
  - ARTHRALGIA [None]
